FAERS Safety Report 5759934-8 (Version None)
Quarter: 2008Q2

REPORT INFORMATION
  Report Type: 
  Country: None (occurrence: None)
  Receive Date: 20080605
  Receipt Date: 20080528
  Transmission Date: 20081010
  Serious: Yes (Hospitalization)
  Sender: FDA-Public Use
  Company Number: JP-MERCK-0805USA06111

PATIENT

DRUGS (2)
  1. HYZAAR [Suspect]
     Indication: HYPERTENSION
     Route: 048
     Dates: start: 20080320, end: 20080412
  2. ZOCOR [Concomitant]
     Route: 048

REACTIONS (1)
  - BLOOD POTASSIUM DECREASED [None]
